FAERS Safety Report 11067387 (Version 1)
Quarter: 2015Q2

REPORT INFORMATION
  Report Type: Report from Study
  Country: US (occurrence: US)
  Receive Date: 20150427
  Receipt Date: 20150427
  Transmission Date: 20150821
  Serious: Yes (Other)
  Sender: FDA-Public Use
  Company Number: US-ROCHE-1568251

PATIENT
  Sex: Female

DRUGS (4)
  1. CARBOPLATIN. [Suspect]
     Active Substance: CARBOPLATIN
     Indication: ENDOMETRIAL CANCER
     Dosage: AUC 5
     Route: 065
  2. PACLITAXEL. [Suspect]
     Active Substance: PACLITAXEL
     Indication: ENDOMETRIAL CANCER
     Dosage: 4 CYCLES
     Route: 065
  3. CISPLATIN. [Suspect]
     Active Substance: CISPLATIN
     Indication: ENDOMETRIAL CANCER
     Dosage: ON DAYS 1 AND 29 OF RADIATION
     Route: 065
  4. BEVACIZUMAB [Suspect]
     Active Substance: BEVACIZUMAB
     Indication: ENDOMETRIAL CANCER
     Dosage: ON DAYS 1, 15, AND 29 OF RADIATION
     Route: 042

REACTIONS (4)
  - Alanine aminotransferase increased [Unknown]
  - Vaginal inflammation [Unknown]
  - Vaginal infection [Unknown]
  - Hyperglycaemia [Unknown]
